FAERS Safety Report 4969071-8 (Version None)
Quarter: 2006Q2

REPORT INFORMATION
  Report Type: 
  Country: None (occurrence: None)
  Receive Date: 20060411
  Receipt Date: 20060330
  Transmission Date: 20061013
  Serious: Yes (Other)
  Sender: FDA-Public Use
  Company Number: DE-BRISTOL-MYERS SQUIBB COMPANY-13333141

PATIENT
  Age: 72 Year
  Sex: Female

DRUGS (2)
  1. TAXOL [Suspect]
     Indication: OVARIAN CANCER
     Dates: start: 20040101, end: 20040501
  2. CARBOPLATIN [Suspect]
     Indication: OVARIAN CANCER
     Dates: start: 20040101, end: 20040501

REACTIONS (2)
  - ANTINUCLEAR ANTIBODY INCREASED [None]
  - SENSORY DISTURBANCE [None]
